FAERS Safety Report 20472954 (Version 3)
Quarter: 2022Q1

REPORT INFORMATION
  Report Type: Spontaneous
  Country: FR (occurrence: FR)
  Receive Date: 20220215
  Receipt Date: 20220311
  Transmission Date: 20220424
  Serious: Yes (Death)
  Sender: FDA-Public Use
  Company Number: None

PATIENT
  Age: 63 Year
  Sex: Female
  Weight: 96 kg

DRUGS (8)
  1. PALIPERIDONE PALMITATE [Suspect]
     Active Substance: PALIPERIDONE PALMITATE
     Indication: Schizophrenia
     Dosage: 100MG/28J
     Route: 030
     Dates: start: 20210908, end: 20211209
  2. PALIPERIDONE PALMITATE [Suspect]
     Active Substance: PALIPERIDONE PALMITATE
  3. PALIPERIDONE PALMITATE [Suspect]
     Active Substance: PALIPERIDONE PALMITATE
  4. VALIUM [Concomitant]
     Active Substance: DIAZEPAM
  5. DOLIPRANE [Concomitant]
     Active Substance: ACETAMINOPHEN
  6. LEVOMEPROMAZINE HYDROCHLORIDE [Concomitant]
     Active Substance: LEVOMEPROMAZINE HYDROCHLORIDE
  7. NICARDIPINE HYDROCHLORIDE [Concomitant]
     Active Substance: NICARDIPINE HYDROCHLORIDE
  8. LOXAPINE SUCCINATE [Concomitant]
     Active Substance: LOXAPINE SUCCINATE

REACTIONS (1)
  - Sudden death [Fatal]

NARRATIVE: CASE EVENT DATE: 20211221
